FAERS Safety Report 16793049 (Version 2)
Quarter: 2019Q3

REPORT INFORMATION
  Report Type: Spontaneous
  Country: US (occurrence: US)
  Receive Date: 20190911
  Receipt Date: 20190911
  Transmission Date: 20191005
  Serious: Yes (Hospitalization, Other)
  Sender: FDA-Public Use
  Company Number: US-ABBVIE-19K-163-2867092-00

PATIENT
  Age: 53 Year
  Sex: Female
  Weight: 83.99 kg

DRUGS (2)
  1. CRYSELLE [Concomitant]
     Active Substance: ETHINYL ESTRADIOL\NORGESTREL
     Indication: CONTRACEPTION
  2. HUMIRA [Suspect]
     Active Substance: ADALIMUMAB
     Indication: PSORIATIC ARTHROPATHY
     Route: 058
     Dates: start: 200911, end: 201810

REACTIONS (23)
  - Multiple sclerosis [Unknown]
  - Low density lipoprotein increased [Unknown]
  - Alanine aminotransferase increased [Unknown]
  - Blindness [Unknown]
  - Meniere^s disease [Unknown]
  - Platelet count increased [Unknown]
  - Cardiolipin antibody positive [Unknown]
  - Pain in extremity [Unknown]
  - Neck pain [Unknown]
  - Demyelination [Recovering/Resolving]
  - Confusional state [Not Recovered/Not Resolved]
  - Eosinophil count increased [Unknown]
  - Blood triglycerides increased [Unknown]
  - Musculoskeletal pain [Unknown]
  - Memory impairment [Not Recovered/Not Resolved]
  - Myalgia [Not Recovered/Not Resolved]
  - Dizziness [Unknown]
  - Cognitive disorder [Unknown]
  - Monocyte count increased [Unknown]
  - Blood cholesterol increased [Unknown]
  - Dysgraphia [Not Recovered/Not Resolved]
  - Vertigo [Not Recovered/Not Resolved]
  - Gait disturbance [Unknown]

NARRATIVE: CASE EVENT DATE: 2018
